FAERS Safety Report 15668975 (Version 7)
Quarter: 2021Q1

REPORT INFORMATION
  Report Type: Report from Study
  Country: None (occurrence: CO)
  Receive Date: 20181129
  Receipt Date: 20210129
  Transmission Date: 20210419
  Serious: Yes (Hospitalization, Other)
  Sender: FDA-Public Use
  Company Number: CO-ABBVIE-18K-036-2572251-00

PATIENT
  Age: 65 Year
  Sex: Female
  Weight: 62 kg

DRUGS (4)
  1. HUMIRA [Suspect]
     Active Substance: ADALIMUMAB
     Indication: RHEUMATOID ARTHRITIS
     Route: 058
     Dates: start: 20081229
  2. HUMIRA [Suspect]
     Active Substance: ADALIMUMAB
     Indication: RHEUMATOID ARTHRITIS
     Route: 058
     Dates: start: 2018, end: 20201218
  3. HUMIRA [Suspect]
     Active Substance: ADALIMUMAB
     Route: 058
  4. AMLODIPINE [Concomitant]
     Active Substance: AMLODIPINE BESYLATE
     Indication: PRODUCT USED FOR UNKNOWN INDICATION

REACTIONS (17)
  - Pain [Recovering/Resolving]
  - Malaise [Unknown]
  - Swelling [Recovering/Resolving]
  - Hypertension [Unknown]
  - Urinary tract infection [Not Recovered/Not Resolved]
  - Malaise [Recovering/Resolving]
  - Pulmonary oedema [Unknown]
  - Back pain [Recovered/Resolved]
  - Diabetes mellitus [Recovering/Resolving]
  - Coronavirus infection [Recovered/Resolved]
  - Arthralgia [Unknown]
  - Discomfort [Recovered/Resolved]
  - Dizziness [Unknown]
  - Bladder pain [Unknown]
  - Unevaluable event [Unknown]
  - Catheter placement [Recovering/Resolving]
  - Pain in extremity [Unknown]

NARRATIVE: CASE EVENT DATE: 201808
